FAERS Safety Report 10395990 (Version 1)
Quarter: 2014Q1

REPORT INFORMATION
  Report Type: Spontaneous
  Country: US (occurrence: None)
  Receive Date: 20130524
  Receipt Date: 20130524
  Transmission Date: 20141002
  Serious: No
  Sender: FDA-Public Use
  Company Number: PHEH2012US018240

PATIENT
  Age: 20 Year
  Sex: Female
  Weight: 65.8 kg

DRUGS (6)
  1. GILENYA (FTY) CAPSULE, 0.5MG [Suspect]
     Indication: MULTIPLE SCLEROSIS
     Route: 048
     Dates: start: 20120914
  2. FLAXSEED OIL (LINUM USITATISSIMUM SEED OIL) [Concomitant]
  3. VITAMIN D (ERGOCALCIFEROL) [Concomitant]
  4. NORGESTIMATE [Concomitant]
  5. ETHINYLESTRADIOL [Concomitant]
  6. TAMBOCOR (FLECAINIDE ACETATE) [Concomitant]

REACTIONS (6)
  - Hypoaesthesia oral [None]
  - Hypoaesthesia [None]
  - Dizziness [None]
  - Bradycardia [None]
  - Headache [None]
  - Vision blurred [None]
